FAERS Safety Report 5879582-9 (Version None)
Quarter: 2008Q3

REPORT INFORMATION
  Report Type: 
  Country: None (occurrence: None)
  Receive Date: 20080912
  Receipt Date: 20080902
  Transmission Date: 20090109
  Serious: Yes (Other)
  Sender: FDA-Public Use
  Company Number: US-JNJFOC-20060602967

PATIENT
  Sex: Female

DRUGS (5)
  1. ARESTIN [Suspect]
     Indication: PERIODONTITIS
     Route: 004
  2. TOBRAMYCIN [Suspect]
     Indication: DRUG USE FOR UNKNOWN INDICATION
     Route: 065
  3. MACROBID [Concomitant]
     Indication: CYSTITIS
  4. PREMARIN [Concomitant]
     Route: 065
  5. VITAMIN TAB [Concomitant]

REACTIONS (2)
  - BASAL CELL CARCINOMA [None]
  - SYSTEMIC LUPUS ERYTHEMATOSUS RASH [None]
